FAERS Safety Report 7539885-9 (Version None)
Quarter: 2011Q2

REPORT INFORMATION
  Report Type: 
  Country: None (occurrence: None)
  Receive Date: 20110610
  Receipt Date: 20110531
  Transmission Date: 20111010
  Serious: Yes (Other)
  Sender: FDA-Public Use
  Company Number: US-PFIZER INC-2011117334

PATIENT
  Sex: Female
  Weight: 65.76 kg

DRUGS (11)
  1. PRISTIQ [Suspect]
     Indication: DEPRESSION
     Dosage: 50 MG, 1X/DAY
     Route: 048
     Dates: start: 20110501
  2. PRISTIQ [Suspect]
     Indication: FATIGUE
  3. ASPIRIN [Concomitant]
     Indication: HEADACHE
  4. SIMVASTATIN [Concomitant]
     Indication: BLOOD CHOLESTEROL INCREASED
     Dosage: 20 MG
  5. SIMVASTATIN [Concomitant]
     Indication: HYPERTENSION
  6. ASPIRIN [Concomitant]
     Indication: ANTIPLATELET THERAPY
     Dosage: 325 MG, DAILY
  7. AMLODIPINE BESILATE [Concomitant]
     Indication: HYPERTENSION
     Dosage: 5 MG, DAILY
  8. SIMVASTATIN [Concomitant]
     Indication: CEREBROVASCULAR ACCIDENT
  9. HYDROCHLOROTHIAZIDE [Concomitant]
     Indication: HYPERTENSION
     Dosage: 12.5 MG, DAILY
  10. PRISTIQ [Suspect]
     Indication: ASTHENIA
  11. NEXIUM [Concomitant]
     Indication: GASTROOESOPHAGEAL REFLUX DISEASE
     Dosage: 40 MG, AS NEEDED

REACTIONS (3)
  - SKIN ODOUR ABNORMAL [None]
  - HEADACHE [None]
  - HYPOGLYCAEMIA [None]
